FAERS Safety Report 5339806-3 (Version None)
Quarter: 2007Q2

REPORT INFORMATION
  Report Type: 
  Country: None (occurrence: None)
  Receive Date: 20070525
  Receipt Date: 20070514
  Transmission Date: 20071010
  Serious: Yes (Hospitalization)
  Sender: FDA-Public Use
  Company Number: 2007-00101

PATIENT
  Age: 76 Year
  Sex: Male
  Weight: 103.4 kg

DRUGS (8)
  1. VELCADE [Suspect]
     Indication: MULTIPLE MYELOMA
     Dosage: 1.30 MG/M2, INTRAVENOUS
     Route: 042
     Dates: start: 20060911, end: 20061102
  2. DECADRON [Concomitant]
  3. HYDROCHLOROTHIAZIDE [Concomitant]
  4. LOSARTAN K (LOSARTAN POTASSIUM) [Concomitant]
  5. REFRESH (POLYVINYL ALCOHOL, POLYVIDONE) [Concomitant]
  6. TIMOLOL MALEATE [Concomitant]
  7. TRAVOPROST (TRAVOPROST) [Concomitant]
  8. GLIPIZIDE [Concomitant]

REACTIONS (36)
  - ABASIA [None]
  - ASTHENIA [None]
  - BENIGN NEOPLASM [None]
  - BLOOD GLUCOSE INCREASED [None]
  - BONE DENSITY DECREASED [None]
  - BONE DISORDER [None]
  - BRAIN SCAN ABNORMAL [None]
  - CEREBRAL ISCHAEMIA [None]
  - COMMUNICATION DISORDER [None]
  - CONFUSIONAL STATE [None]
  - CONJUNCTIVITIS [None]
  - DEPRESSED LEVEL OF CONSCIOUSNESS [None]
  - DISORIENTATION [None]
  - DYSSTASIA [None]
  - EXOPHTHALMOS [None]
  - FAECAL INCONTINENCE [None]
  - HYPOTONIA [None]
  - INTERVERTEBRAL DISC DEGENERATION [None]
  - INTERVERTEBRAL DISC PROTRUSION [None]
  - LYME DISEASE [None]
  - MASS [None]
  - MOTOR DYSFUNCTION [None]
  - NEOPLASM [None]
  - NERVOUS SYSTEM DISORDER [None]
  - NEUROPATHY PERIPHERAL [None]
  - NUCLEAR MAGNETIC RESONANCE IMAGING ABNORMAL [None]
  - ORAL INTAKE REDUCED [None]
  - PLASMACYTOMA [None]
  - RADICULOPATHY [None]
  - SOFT TISSUE DISORDER [None]
  - SPINAL COLUMN STENOSIS [None]
  - SPINAL DISORDER [None]
  - URINARY INCONTINENCE [None]
  - URINE OUTPUT DECREASED [None]
  - VIRAL INFECTION [None]
  - WEIGHT DECREASED [None]
